FAERS Safety Report 16300125 (Version 1)
Quarter: 2019Q2

REPORT INFORMATION
  Report Type: Spontaneous
  Country: FI (occurrence: FI)
  Receive Date: 20190510
  Receipt Date: 20190510
  Transmission Date: 20190711
  Serious: Yes (Hospitalization)
  Sender: FDA-Public Use
  Company Number: FI-TEVA-2019-FI-1047433

PATIENT
  Age: 71 Year
  Sex: Female

DRUGS (7)
  1. KALCIPOS-D [Concomitant]
     Active Substance: CALCIUM CARBONATE\CHOLECALCIFEROL
     Route: 048
  2. ESCITALOPRAM [Suspect]
     Active Substance: ESCITALOPRAM OXALATE
     Indication: DEPRESSED MOOD
     Dosage: 10,MG,DAILY
     Route: 048
  3. VAGIFEM [Concomitant]
     Active Substance: ESTRADIOL
     Dosage: 10,?G,DAILY
     Route: 067
  4. CARDACE [Concomitant]
     Active Substance: RAMIPRIL
     Indication: ARRHYTHMIA
     Route: 048
  5. PRIMASPAN [Concomitant]
     Active Substance: ASPIRIN
     Dosage: 100,MG,DAILY
     Route: 048
  6. BETASERC [Concomitant]
     Active Substance: BETAHISTINE
     Indication: DIZZINESS
     Dosage: 8,MG,DAILY
     Route: 048
  7. BRILIQUE [Concomitant]
     Active Substance: TICAGRELOR
     Dosage: 180,MG,DAILY
     Route: 048

REACTIONS (4)
  - Skin burning sensation [Recovered/Resolved]
  - Lip oedema [Recovered/Resolved]
  - Blood pressure increased [Recovered/Resolved]
  - Oral discomfort [Recovered/Resolved]

NARRATIVE: CASE EVENT DATE: 20190325
